FAERS Safety Report 7512407-4 (Version None)
Quarter: 2011Q2

REPORT INFORMATION
  Report Type: 
  Country: None (occurrence: None)
  Receive Date: 20110531
  Receipt Date: 20110525
  Transmission Date: 20111010
  Serious: Yes (Death)
  Sender: FDA-Public Use
  Company Number: US-ROCHE-764526

PATIENT

DRUGS (1)
  1. IBANDRONATE SODIUM [Suspect]
     Route: 065

REACTIONS (1)
  - COMPLETED SUICIDE [None]
